FAERS Safety Report 5130144-0 (Version None)
Quarter: 2006Q4

REPORT INFORMATION
  Report Type: 
  Country: None (occurrence: None)
  Receive Date: 20061013
  Receipt Date: 20061003
  Transmission Date: 20070319
  Serious: Yes (Hospitalization)
  Sender: FDA-Public Use
  Company Number: CERZ-11316

PATIENT
  Age: 75 Year
  Sex: Female
  Weight: 82.3 kg

DRUGS (3)
  1. CEREZYME [Suspect]
     Indication: GAUCHER'S DISEASE
     Dosage: 5000 UNITS Q2WKS IV
     Route: 042
     Dates: start: 20060801
  2. CEREZYME [Suspect]
  3. CEREZYME [Suspect]
     Indication: GAUCHER'S DISEASE
     Dosage: 5000 UNITS Q2WKS IV
     Route: 042
     Dates: start: 20020101, end: 20060501

REACTIONS (7)
  - ABDOMINAL PAIN UPPER [None]
  - BACK PAIN [None]
  - CHEST PAIN [None]
  - ELECTROCARDIOGRAM ABNORMAL [None]
  - HYPERTENSION [None]
  - PHYSICAL EXAMINATION ABNORMAL [None]
  - RENAL ARTERY STENOSIS [None]
